FAERS Safety Report 19377436 (Version 2)
Quarter: 2021Q3

REPORT INFORMATION
  Report Type: Spontaneous
  Country: US (occurrence: US)
  Receive Date: 20210604
  Receipt Date: 20210716
  Transmission Date: 20211014
  Serious: No
  Sender: FDA-Public Use
  Company Number: US-PFIZER INC-2021527706

PATIENT
  Age: 64 Year
  Sex: Female

DRUGS (1)
  1. GENOTROPIN [Suspect]
     Active Substance: SOMATROPIN
     Indication: HYPOTHALAMO-PITUITARY DISORDER
     Dosage: 0.3, UNK, 1X/DAY (AT NIGHTIME)
     Dates: start: 2019

REACTIONS (3)
  - Product preparation issue [Unknown]
  - Product dose omission in error [Unknown]
  - Wrong technique in device usage process [Unknown]
